FAERS Safety Report 25947489 (Version 1)
Quarter: 2025Q4

REPORT INFORMATION
  Report Type: Report from Study
  Country: US (occurrence: US)
  Receive Date: 20251022
  Receipt Date: 20251022
  Transmission Date: 20260118
  Serious: No
  Sender: MALLINCKRODT
  Company Number: US-MALLINCKRODT-MNK202506063

PATIENT
  Sex: Male

DRUGS (1)
  1. CORTICOTROPIN [Suspect]
     Active Substance: CORTICOTROPIN
     Indication: Psoriatic arthropathy
     Dosage: UNKNOWN

REACTIONS (7)
  - Renal disorder [Unknown]
  - Muscle spasms [Unknown]
  - Burning sensation [Unknown]
  - Pain in extremity [Unknown]
  - Electric shock sensation [Unknown]
  - Arthralgia [Unknown]
  - Stress [Unknown]
